FAERS Safety Report 6429716-2 (Version None)
Quarter: 2009Q4

REPORT INFORMATION
  Report Type: 
  Country: None (occurrence: None)
  Receive Date: 20091106
  Receipt Date: 20091029
  Transmission Date: 20100525
  Serious: Yes (Hospitalization)
  Sender: FDA-Public Use
  Company Number: US-BIOGENIDEC-2009BI035318

PATIENT
  Age: 65 Year
  Sex: Female

DRUGS (1)
  1. AVONEX [Suspect]
     Indication: MULTIPLE SCLEROSIS
     Route: 030
     Dates: start: 19960529

REACTIONS (5)
  - ANKLE FRACTURE [None]
  - CRYOGLOBULINAEMIA [None]
  - FALL [None]
  - STAPHYLOCOCCAL INFECTION [None]
  - VASCULITIS [None]
